FAERS Safety Report 5131724-9 (Version None)
Quarter: 2006Q4

REPORT INFORMATION
  Report Type: 
  Country: None (occurrence: None)
  Receive Date: 20061016
  Receipt Date: 20061003
  Transmission Date: 20070319
  Serious: Yes (Hospitalization)
  Sender: FDA-Public Use
  Company Number: 2006120799

PATIENT
  Age: 18 Year
  Sex: Female
  Weight: 60 kg

DRUGS (1)
  1. SUTENT [Suspect]
     Indication: GASTROINTESTINAL STROMAL TUMOUR
     Dosage: 50 MG (50 MG, 1 IN 1 D);ORAL
     Route: 048
     Dates: start: 20060824

REACTIONS (4)
  - ANAEMIA [None]
  - GASTRIC NEOPLASM [None]
  - GASTRIC ULCER HAEMORRHAGE [None]
  - NEUTROPENIA [None]
